FAERS Safety Report 9678324 (Version 1)
Quarter: 2013Q4

REPORT INFORMATION
  Report Type: Spontaneous
  Country: US (occurrence: US)
  Receive Date: 20131108
  Receipt Date: 20131108
  Transmission Date: 20140711
  Serious: Yes (Hospitalization, Other)
  Sender: FDA-Public Use
  Company Number: US-TEVA-443297USA

PATIENT
  Age: 2 Year
  Sex: Male

DRUGS (2)
  1. QUETIAPINE FUMARATE [Suspect]
     Indication: OVERDOSE
     Dosage: 1200MG (82.76 MG/KG)
     Route: 048
  2. PROPOFOL [Concomitant]
     Route: 065

REACTIONS (4)
  - Lethargy [Unknown]
  - Hypotension [Unknown]
  - Respiratory depression [Recovered/Resolved]
  - Overdose [Unknown]
